FAERS Safety Report 6686970-X (Version None)
Quarter: 2010Q2

REPORT INFORMATION
  Report Type: 
  Country: None (occurrence: None)
  Receive Date: 20100414
  Receipt Date: 20100331
  Transmission Date: 20101027
  Serious: Yes (Life-Threatening, Hospitalization)
  Sender: FDA-Public Use
  Company Number: 2010AP000650

PATIENT
  Age: 80 Year
  Sex: Male

DRUGS (22)
  1. OMEPRAZOLE [Suspect]
     Indication: BARRETT'S OESOPHAGUS
     Dosage: 40 MG; PO; QD
     Route: 048
     Dates: start: 20100120, end: 20100223
  2. OMEPRAZOLE [Suspect]
     Indication: GASTRIC ULCER
     Dosage: 40 MG; PO; QD
     Route: 048
     Dates: start: 20100120, end: 20100223
  3. OMEPRAZOLE [Suspect]
     Indication: UPPER GASTROINTESTINAL HAEMORRHAGE
     Dosage: 40 MG; PO; QD
     Route: 048
     Dates: start: 20100120, end: 20100223
  4. AMIODARONE HCL [Suspect]
     Indication: SUPRAVENTRICULAR TACHYCARDIA
     Dosage: PO
     Route: 048
     Dates: start: 20100121, end: 20100223
  5. IRON (IRON) [Concomitant]
  6. ASPIRIN [Concomitant]
  7. BISOPROLOL FUMARATE [Concomitant]
  8. CLOPIDOGREL [Concomitant]
  9. AMOXICILLIN [Concomitant]
  10. CLAVULANATE POTASSIUM (CLAVULANATE POTASSIUM) [Concomitant]
  11. DICLOFENAC SODIUM [Concomitant]
  12. ENOXAPARIN SODIUM [Concomitant]
  13. POTASSIUM BICARBONATE (POTASSIUM BICARBONATE) [Concomitant]
  14. SODIUM ALGINATE (SODIUM ALGINATE) [Concomitant]
  15. GLICLAZIDE (GLICLAZIDE) [Concomitant]
  16. HYDROCORTONE [Concomitant]
  17. LISINOPRIL [Concomitant]
  18. METFORMIN HCL [Concomitant]
  19. ACETAMINOPHEN [Concomitant]
  20. PRAVASTATIN SODIUM [Concomitant]
  21. SITAGLIPTIN PHOSPHATE (SITAGLIPTIN PHOSPHATE) [Concomitant]
  22. GLYCERYL TRINITRATE (GLYCERYL TRINITRATE) [Concomitant]

REACTIONS (4)
  - EPISTAXIS [None]
  - HAEMOGLOBIN DECREASED [None]
  - HYPERTENSION [None]
  - IDIOPATHIC THROMBOCYTOPENIC PURPURA [None]
